FAERS Safety Report 6525255-9 (Version None)
Quarter: 2009Q4

REPORT INFORMATION
  Report Type: 
  Country: None (occurrence: None)
  Receive Date: 20091228
  Receipt Date: 20091203
  Transmission Date: 20100525
  Serious: Yes (Disabling)
  Sender: FDA-Public Use
  Company Number: JPI-P-009361

PATIENT
  Age: 31 Year
  Sex: Male

DRUGS (2)
  1. LUVOX [Suspect]
     Indication: DRUG USE FOR UNKNOWN INDICATION
     Dosage: (100 MG,1 D) ,ORAL
     Route: 049
  2. BUSPIRONE HCL [Suspect]
     Indication: DRUG USE FOR UNKNOWN INDICATION
     Dosage: (10 MG,1 D) ,ORAL
     Route: 048

REACTIONS (7)
  - ABASIA [None]
  - AGITATION [None]
  - ANXIETY [None]
  - FEELING ABNORMAL [None]
  - MOVEMENT DISORDER [None]
  - MUSCLE SPASMS [None]
  - TENSION [None]
